FAERS Safety Report 10898701 (Version 2)
Quarter: 2015Q1

REPORT INFORMATION
  Report Type: Report from Study
  Country: US (occurrence: US)
  Receive Date: 20150309
  Receipt Date: 20150320
  Transmission Date: 20150721
  Serious: Yes (Hospitalization, Other)
  Sender: FDA-Public Use
  Company Number: US-ABBVIE-15K-163-1354168-00

PATIENT
  Age: 63 Year
  Sex: Female
  Weight: 96.7 kg

DRUGS (5)
  1. HUMIRA [Suspect]
     Active Substance: ADALIMUMAB
     Indication: CROHN^S DISEASE
     Route: 058
     Dates: start: 20141114, end: 20150220
  2. FOLIC ACID. [Concomitant]
     Active Substance: FOLIC ACID
     Indication: PRODUCT USED FOR UNKNOWN INDICATION
  3. VITAMIN D [Concomitant]
     Active Substance: CHOLECALCIFEROL
     Indication: VITAMIN SUPPLEMENTATION
  4. AMLODIPINE [Concomitant]
     Active Substance: AMLODIPINE BESYLATE
     Indication: HYPERTENSION
  5. HYDROCHLOROTHIAZIDE. [Concomitant]
     Active Substance: HYDROCHLOROTHIAZIDE
     Indication: HYPERTENSION

REACTIONS (11)
  - Neutrophil toxic granulation present [Unknown]
  - Haemoglobin decreased [Unknown]
  - Thrombocytopenia [Recovering/Resolving]
  - Vitamin B12 decreased [Unknown]
  - Blood iron decreased [Unknown]
  - Headache [Unknown]
  - Red blood cell count decreased [Unknown]
  - Laboratory test abnormal [Recovered/Resolved]
  - Haematocrit decreased [Unknown]
  - Immune thrombocytopenic purpura [Recovering/Resolving]
  - White blood cell count increased [Unknown]

NARRATIVE: CASE EVENT DATE: 201502
